FAERS Safety Report 7026352-4 (Version None)
Quarter: 2010Q4

REPORT INFORMATION
  Report Type: 
  Country: None (occurrence: None)
  Receive Date: 20101004
  Receipt Date: 20100923
  Transmission Date: 20110411
  Serious: Yes (Hospitalization)
  Sender: FDA-Public Use
  Company Number: US-ELI_LILLY_AND_COMPANY-US201008006473

PATIENT
  Sex: Female
  Weight: 113.38 kg

DRUGS (8)
  1. BYETTA [Suspect]
     Indication: TYPE 2 DIABETES MELLITUS
     Dosage: 5 UG, 2/D
     Route: 058
     Dates: start: 20091228
  2. LANTUS [Concomitant]
     Indication: TYPE 2 DIABETES MELLITUS
     Dosage: 20 D/F, UNK
  3. METFORMIN HCL [Concomitant]
     Indication: TYPE 2 DIABETES MELLITUS
     Dosage: 1000 MG, 2/D
  4. JANUVIA [Concomitant]
     Indication: TYPE 2 DIABETES MELLITUS
     Dosage: 100 MG, DAILY (1/D)
  5. ALBUTEROL [Concomitant]
     Indication: ASTHMA
     Dosage: 4 MG, 2/D
     Route: 048
  6. CITALOPRAM HYDROBROMIDE [Concomitant]
     Indication: DEPRESSION
     Dosage: 20 MG, DAILY (1/D)
  7. TOVIAZ [Concomitant]
     Indication: INCONTINENCE
     Dosage: 8 MG, EACH EVENING
  8. RISPERIDONE [Concomitant]
     Indication: DEPRESSION
     Dosage: 2 MG, UNK

REACTIONS (4)
  - ANAEMIA [None]
  - CYSTITIS [None]
  - NEPHROLITHIASIS [None]
  - OFF LABEL USE [None]
